FAERS Safety Report 14945208 (Version 1)
Quarter: 2018Q2

REPORT INFORMATION
  Report Type: Spontaneous
  Country: ES (occurrence: ES)
  Receive Date: 20180529
  Receipt Date: 20180529
  Transmission Date: 20180711
  Serious: Yes (Other)
  Sender: FDA-Public Use
  Company Number: ES-B.I. PHARMACEUTICALS,INC./RIDGEFIELD-2018-12-001823

PATIENT
  Age: 73 Year
  Sex: Female
  Weight: 90 kg

DRUGS (17)
  1. FUROSEMIDA [Concomitant]
     Active Substance: FUROSEMIDE
     Indication: HYPERTENSIVE HEART DISEASE
     Dosage: 2 TABLETS EVERY DAY
     Route: 048
     Dates: start: 20170519
  2. SERETIDE [Concomitant]
     Active Substance: FLUTICASONE PROPIONATE\SALMETEROL XINAFOATE
     Indication: ASTHMA
     Dosage: 1 PUFF EVERY 12 HOURS
     Route: 055
     Dates: start: 20170616
  3. GABAPENTINA [Concomitant]
     Active Substance: GABAPENTIN
     Indication: BACK PAIN
     Dosage: 1 CAPSULE EVERY 8 HOURS
     Route: 048
     Dates: start: 20121108
  4. INSULINA GLARGINA [Concomitant]
     Indication: TYPE 2 DIABETES MELLITUS
     Dosage: 90 IU AT BREAKFAST
     Route: 058
     Dates: start: 20151125
  5. MODIODAL [Concomitant]
     Active Substance: MODAFINIL
     Indication: SLEEP APNOEA SYNDROME
     Dosage: 1 TABLET EVERY DAY
     Route: 048
     Dates: start: 20150911
  6. HEMOVAS [Concomitant]
     Indication: OEDEMA PERIPHERAL
     Dosage: 1 TABLET EVERY 12 HOURS
     Route: 048
     Dates: start: 20170519
  7. MIRAPEXIN [Concomitant]
     Active Substance: PRAMIPEXOLE
     Indication: PARKINSON^S DISEASE
     Dosage: 1 TABLET EVERY DAY
     Route: 048
     Dates: start: 20160711
  8. LAMOTRIGINA [Concomitant]
     Active Substance: LAMOTRIGINE
     Indication: FOCAL DYSCOGNITIVE SEIZURES
     Dosage: 1 TABLET EVERY 12 HOURS
     Route: 048
     Dates: start: 20130115
  9. JARDIANCE [Suspect]
     Active Substance: EMPAGLIFLOZIN
     Indication: TYPE 2 DIABETES MELLITUS
     Dosage: 1 TABLET EVERY DAY
     Route: 048
     Dates: start: 20160506
  10. ALDACTONE [Concomitant]
     Active Substance: SPIRONOLACTONE
     Indication: ESSENTIAL HYPERTENSION
     Dosage: 1 TABLET EVERY DAY; 1 COMPRIMIDO CADA DIA
     Route: 048
     Dates: start: 20161212
  11. TRULICITY [Concomitant]
     Active Substance: DULAGLUTIDE
     Indication: TYPE 2 DIABETES MELLITUS
     Dosage: 1 CARTRIDGE/PEN EVERY 7 DAYS
     Route: 058
     Dates: start: 20180130
  12. HIDROXIZINA [Concomitant]
     Active Substance: HYDROXYZINE HYDROCHLORIDE
     Indication: TYPE 2 DIABETES MELLITUS
     Dosage: 1 TABLET EVERY 8 HOURS
     Route: 048
     Dates: start: 20170724
  13. PRITOR [Concomitant]
     Active Substance: TELMISARTAN
     Indication: ESSENTIAL HYPERTENSION
     Dosage: 1 TABLET EVERY DAY
     Route: 048
     Dates: start: 20170816
  14. ESCITALOPRAM [Concomitant]
     Active Substance: ESCITALOPRAM OXALATE
     Indication: ANXIETY
     Dosage: 1 TABLET EVERY DAY
     Route: 048
     Dates: start: 20120716
  15. STALEVO [Concomitant]
     Active Substance: CARBIDOPA\ENTACAPONE\LEVODOPA
     Indication: PARKINSON^S DISEASE
     Dosage: 1 TABLET EVERY DAY
     Route: 048
     Dates: start: 20111220
  16. OMEPRAZOL [Concomitant]
     Active Substance: OMEPRAZOLE
     Indication: DYSPEPSIA
     Dosage: 1 CAPSULE EVERY DAY
     Route: 048
     Dates: start: 20151117
  17. AZILECT [Concomitant]
     Active Substance: RASAGILINE MESYLATE
     Indication: PARKINSON^S DISEASE
     Dosage: 1 TABLET EVERY DAY
     Route: 048
     Dates: start: 20140916

REACTIONS (2)
  - Skin ulcer [Not Recovered/Not Resolved]
  - Infected skin ulcer [Not Recovered/Not Resolved]

NARRATIVE: CASE EVENT DATE: 20180404
